FAERS Safety Report 8280508 (Version 3)
Quarter: 2013Q2

REPORT INFORMATION
  Report Type: Report from Study
  Country: US (occurrence: US)
  Receive Date: 20111208
  Receipt Date: 20130423
  Transmission Date: 20140414
  Serious: Yes (Other)
  Sender: FDA-Public Use
  Company Number: US-PFIZER INC-2011296413

PATIENT
  Age: 59 Year
  Sex: Female
  Weight: 81.63 kg

DRUGS (3)
  1. EFFEXOR XR [Suspect]
     Indication: DEPRESSION
     Dosage: 150 MG, 1X/DAY
     Route: 048
     Dates: start: 2005, end: 201112
  2. LAMICTAL [Concomitant]
     Indication: NEURALGIA
     Dosage: 50 MG, 2X/DAY
  3. SIMVASTATIN [Concomitant]
     Indication: BLOOD CHOLESTEROL INCREASED
     Dosage: 20 MG DAILY

REACTIONS (5)
  - Withdrawal syndrome [Unknown]
  - Feeling abnormal [Unknown]
  - Anxiety [Unknown]
  - Dyskinesia [Unknown]
  - Agitation [Recovered/Resolved]
